FAERS Safety Report 6771776-3 (Version None)
Quarter: 2010Q2

REPORT INFORMATION
  Report Type: 
  Country: None (occurrence: None)
  Receive Date: 20100616
  Receipt Date: 20100122
  Transmission Date: 20101027
  Serious: No
  Sender: FDA-Public Use
  Company Number: US-ASTRAZENECA-2010SE03179

PATIENT
  Age: 72 Year
  Sex: Female
  Weight: 46.7 kg

DRUGS (6)
  1. ATACAND [Suspect]
     Indication: HYPERTENSION
     Route: 048
     Dates: start: 20100121
  2. LEVOXYL [Concomitant]
  3. VIVELLE [Concomitant]
  4. ZANTAC [Concomitant]
  5. EXCEDRIN (MIGRAINE) [Concomitant]
  6. EYE DROPS [Concomitant]

REACTIONS (4)
  - DIZZINESS [None]
  - HEADACHE [None]
  - INSOMNIA [None]
  - NERVOUSNESS [None]
